FAERS Safety Report 25741466 (Version 1)
Quarter: 2025Q3

REPORT INFORMATION
  Report Type: Report from Study
  Country: JP (occurrence: JP)
  Receive Date: 20250829
  Receipt Date: 20250829
  Transmission Date: 20251020
  Serious: Yes (Other)
  Sender: MALLINCKRODT
  Company Number: JP-MALLINCKRODT-MNK202505239

PATIENT
  Sex: Female
  Weight: 3 kg

DRUGS (2)
  1. NITRIC OXIDE [Suspect]
     Active Substance: NITRIC OXIDE
     Indication: Hypoxic ischaemic encephalopathy neonatal
     Route: 055
  2. NITRIC OXIDE [Suspect]
     Active Substance: NITRIC OXIDE
     Indication: Newborn persistent pulmonary hypertension

REACTIONS (3)
  - Infantile spasms [Unknown]
  - Cerebral haemorrhage [Unknown]
  - Central nervous system lesion [Unknown]
